FAERS Safety Report 15775264 (Version 1)
Quarter: 2018Q4

REPORT INFORMATION
  Report Type: Spontaneous
  Country: FR (occurrence: FR)
  Receive Date: 20181231
  Receipt Date: 20181231
  Transmission Date: 20190205
  Serious: Yes (Life-Threatening)
  Sender: FDA-Public Use
  Company Number: FR-ACCORD-098749

PATIENT
  Age: 69 Year
  Sex: Male
  Weight: 74 kg

DRUGS (5)
  1. VOLIBRIS [Concomitant]
     Active Substance: AMBRISENTAN
     Indication: PULMONARY ARTERIAL HYPERTENSION
     Route: 048
     Dates: start: 201507
  2. TRIATEC [Concomitant]
     Dosage: 5 MG, SCORED TABLET
     Route: 048
  3. GEMCITABINE ACCORD [Suspect]
     Active Substance: GEMCITABINE HYDROCHLORIDE
     Indication: HODGKIN^S DISEASE
     Route: 042
     Dates: start: 20180207, end: 20180207
  4. KEYTRUDA [Suspect]
     Active Substance: PEMBROLIZUMAB
     Indication: HODGKIN^S DISEASE
     Route: 042
     Dates: start: 20180207, end: 20180207
  5. REVATIO [Concomitant]
     Active Substance: SILDENAFIL CITRATE
     Indication: PULMONARY ARTERIAL HYPERTENSION
     Route: 048
     Dates: start: 201507

REACTIONS (3)
  - Off label use [Unknown]
  - Loss of consciousness [Recovered/Resolved]
  - Circulatory collapse [Recovered/Resolved]

NARRATIVE: CASE EVENT DATE: 20180207
